FAERS Safety Report 7898577-7 (Version None)
Quarter: 2011Q4

REPORT INFORMATION
  Report Type: 
  Country: None (occurrence: None)
  Receive Date: 20111107
  Receipt Date: 20111104
  Transmission Date: 20120403
  Serious: Yes (Hospitalization, Other)
  Sender: FDA-Public Use
  Company Number: US-ABBOTT-11P-163-0868993-00

PATIENT
  Age: 61 Year
  Sex: Female

DRUGS (6)
  1. HUMIRA [Suspect]
     Indication: PSORIASIS
     Dates: start: 20110601, end: 20110904
  2. ASPIRIN [Concomitant]
     Indication: CARDIAC DISORDER
  3. LIPITOR [Concomitant]
     Indication: HYPERTENSION
  4. COREG [Concomitant]
     Indication: HYPERTENSION
  5. MICARDIS [Concomitant]
     Indication: CARDIAC DISORDER
  6. PREVACID [Concomitant]
     Indication: GASTROOESOPHAGEAL REFLUX DISEASE

REACTIONS (14)
  - MENINGITIS VIRAL [None]
  - DECREASED APPETITE [None]
  - MOBILITY DECREASED [None]
  - HEPATIC STEATOSIS [None]
  - INFLUENZA LIKE ILLNESS [None]
  - BLOOD GLUCOSE INCREASED [None]
  - DIARRHOEA [None]
  - ANXIETY [None]
  - PYREXIA [None]
  - CHEST PAIN [None]
  - BLOOD POTASSIUM DECREASED [None]
  - WEIGHT DECREASED [None]
  - DYSPNOEA [None]
  - INSOMNIA [None]
